FAERS Safety Report 10647707 (Version 3)
Quarter: 2017Q3

REPORT INFORMATION
  Report Type: Report from Study
  Country: GB (occurrence: GB)
  Receive Date: 20141212
  Receipt Date: 20170918
  Transmission Date: 20171127
  Serious: Yes (Other)
  Sender: FDA-Public Use
  Company Number: GB-AMGEN-GBRCT2011038724

PATIENT
  Age: 55 Year
  Sex: Male
  Weight: 81 kg

DRUGS (2)
  1. ETANERCEPT [Suspect]
     Active Substance: ETANERCEPT
     Indication: PRODUCT USED FOR UNKNOWN INDICATION
     Dosage: 25 MG, QWK
     Route: 065
     Dates: start: 20080709, end: 20080927
  2. DERMOVATE [Concomitant]
     Active Substance: CLOBETASOL
     Dosage: UNK
     Dates: start: 20090703

REACTIONS (1)
  - Mycosis fungoides [Unknown]

NARRATIVE: CASE EVENT DATE: 20100716
